FAERS Safety Report 8772094 (Version 8)
Quarter: 2013Q1

REPORT INFORMATION
  Report Type: Report from Study
  Country: JP (occurrence: JP)
  Receive Date: 20120906
  Receipt Date: 20130118
  Transmission Date: 20140127
  Serious: Yes (Hospitalization, Other)
  Sender: FDA-Public Use
  Company Number: JP-JNJFOC-20120900682

PATIENT
  Age: 69 Year
  Sex: Male
  Weight: 76 kg

DRUGS (12)
  1. SIMPONI [Suspect]
     Indication: RHEUMATOID ARTHRITIS
     Route: 058
     Dates: start: 20120607
  2. SIMPONI [Suspect]
     Indication: RHEUMATOID ARTHRITIS
     Route: 058
     Dates: start: 20120705
  3. SIMPONI [Suspect]
     Indication: RHEUMATOID ARTHRITIS
     Route: 058
     Dates: start: 20120802, end: 20120830
  4. METHOTREXATE [Concomitant]
     Indication: RHEUMATOID ARTHRITIS
  5. VOLTAREN [Concomitant]
     Indication: RHEUMATOID ARTHRITIS
     Route: 054
  6. LOXONIN [Concomitant]
     Indication: RHEUMATOID ARTHRITIS
     Route: 061
  7. AMLODIPINE [Concomitant]
     Route: 048
  8. FOLIAMIN [Concomitant]
     Indication: PROPHYLAXIS
  9. MICOMBI [Concomitant]
     Route: 048
  10. CRESTOR [Concomitant]
     Route: 048
  11. SHAKUYAKUKANZOUTOU [Concomitant]
     Route: 048
  12. CRAVIT [Concomitant]
     Route: 047

REACTIONS (1)
  - Colon cancer [Recovering/Resolving]
